FAERS Safety Report 9751125 (Version 1)
Quarter: 2013Q4

REPORT INFORMATION
  Report Type: Spontaneous
  Country: SE (occurrence: SE)
  Receive Date: 20131212
  Receipt Date: 20131212
  Transmission Date: 20140711
  Serious: Yes (Other)
  Sender: FDA-Public Use
  Company Number: SE-TEVA-450029ISR

PATIENT
  Age: 35 Year
  Sex: Female
  Weight: 70 kg

DRUGS (1)
  1. DOXYFERM [Suspect]
     Indication: BORRELIA INFECTION
     Route: 048
     Dates: start: 20130814, end: 20130823

REACTIONS (1)
  - Dizziness [Recovered/Resolved]
